FAERS Safety Report 18094466 (Version 1)
Quarter: 2020Q3

REPORT INFORMATION
  Report Type: Spontaneous
  Country: BR (occurrence: BR)
  Receive Date: 20200731
  Receipt Date: 20200731
  Transmission Date: 20201103
  Serious: Yes (Other)
  Sender: FDA-Public Use
  Company Number: BR-SUN PHARMACEUTICAL INDUSTRIES LTD-2020R1-255678

PATIENT

DRUGS (2)
  1. ACETYLSALICYLIC ACID [Suspect]
     Active Substance: ASPIRIN
     Indication: PROPHYLAXIS
     Dosage: UNK (LOW DOSE)
     Route: 064
  2. CALCIUM [Suspect]
     Active Substance: CALCIUM
     Indication: PROPHYLAXIS
     Dosage: UNK
     Route: 064

REACTIONS (2)
  - Premature baby [Unknown]
  - Foetal exposure during pregnancy [Unknown]
